FAERS Safety Report 9633230 (Version 1)
Quarter: 2013Q4

REPORT INFORMATION
  Report Type: Spontaneous
  Country: US (occurrence: None)
  Receive Date: 20131018
  Receipt Date: 20131018
  Transmission Date: 20140711
  Serious: No
  Sender: FDA-Public Use
  Company Number: None

PATIENT
  Age: 31 Year
  Sex: Female
  Weight: 81.65 kg

DRUGS (2)
  1. MONTELUKAST SOD TABS 10MG MERCK + CO INC [Suspect]
     Indication: ASTHMA
     Dosage: 1 PILL
     Route: 048
     Dates: start: 20131001, end: 20131017
  2. MONTELUKAST SOD TABS 10MG MERCK + CO INC [Suspect]
     Indication: HYPERSENSITIVITY
     Dosage: 1 PILL
     Route: 048
     Dates: start: 20131001, end: 20131017

REACTIONS (3)
  - Chest discomfort [None]
  - Product quality issue [None]
  - Product substitution issue [None]
